FAERS Safety Report 9150090 (Version 1)
Quarter: 2013Q1

REPORT INFORMATION
  Report Type: Spontaneous
  Country: EC (occurrence: EC)
  Receive Date: 20130308
  Receipt Date: 20130308
  Transmission Date: 20140127
  Serious: Yes (Other)
  Sender: FDA-Public Use
  Company Number: EC-PFIZER INC-2013080370

PATIENT
  Age: 19 Year
  Sex: Male

DRUGS (1)
  1. EFEXOR XR [Suspect]
     Dosage: 150 MG, 1X/DAY
     Route: 048

REACTIONS (3)
  - Respiratory failure [Unknown]
  - Haematemesis [Unknown]
  - Eating disorder [Unknown]
